FAERS Safety Report 6420352-0 (Version None)
Quarter: 2009Q4

REPORT INFORMATION
  Report Type: 
  Country: None (occurrence: None)
  Receive Date: 20091021
  Receipt Date: 20090527
  Transmission Date: 20100525
  Serious: No
  Sender: FDA-Public Use
  Company Number: ALL1-2009-01469

PATIENT
  Sex: Female

DRUGS (1)
  1. VYVANSE [Suspect]
     Indication: DRUG USE FOR UNKNOWN INDICATION
     Dosage: MG, 1X/DAY;QD, ORAL
     Route: 048

REACTIONS (1)
  - DERMATILLOMANIA [None]
